FAERS Safety Report 24142406 (Version 1)
Quarter: 2024Q3

REPORT INFORMATION
  Report Type: Spontaneous
  Country: US (occurrence: None)
  Receive Date: 20240726
  Receipt Date: 20240726
  Transmission Date: 20241016
  Serious: Yes (Hospitalization, Disabling, Other)
  Sender: Public
  Company Number: None

PATIENT
  Age: 14 Year
  Sex: Female
  Weight: 49.95 kg

DRUGS (1)
  1. MIRALAX [Suspect]
     Active Substance: POLYETHYLENE GLYCOL 3350
     Indication: Constipation
     Dosage: OTHER QUANTITY : 1 CAP FULL;?FREQUENCY : DAILY;?
     Route: 048
     Dates: start: 20240201, end: 20240623

REACTIONS (2)
  - Generalised tonic-clonic seizure [None]
  - Therapy cessation [None]

NARRATIVE: CASE EVENT DATE: 20240502
